FAERS Safety Report 26209461 (Version 1)
Quarter: 2025Q4

REPORT INFORMATION
  Report Type: Report from Study
  Country: US (occurrence: US)
  Receive Date: 20251229
  Receipt Date: 20251229
  Transmission Date: 20260117
  Serious: Yes (Other)
  Sender: TEVA
  Company Number: US-TEVA-VS-3406219

PATIENT
  Age: 79 Year
  Sex: Male

DRUGS (1)
  1. BOSENTAN [Suspect]
     Active Substance: BOSENTAN
     Indication: Product used for unknown indication
     Route: 065

REACTIONS (2)
  - Knee arthroplasty [Unknown]
  - Brain fog [Unknown]

NARRATIVE: CASE EVENT DATE: 20251201
